FAERS Safety Report 21678949 (Version 1)
Quarter: 2022Q4

REPORT INFORMATION
  Report Type: Spontaneous
  Country: US (occurrence: US)
  Receive Date: 20221204
  Receipt Date: 20221204
  Transmission Date: 20230113
  Serious: Yes (Other)
  Sender: FDA-Public Use
  Company Number: US-JNJFOC-20221201770

PATIENT
  Sex: Male

DRUGS (1)
  1. XARELTO [Suspect]
     Active Substance: RIVAROXABAN
     Indication: Product used for unknown indication
     Dosage: 20MG 30 D/S 1 PER DAY
     Route: 048

REACTIONS (3)
  - Cerebral thrombosis [Unknown]
  - Seizure [Unknown]
  - Memory impairment [Unknown]
